FAERS Safety Report 9522169 (Version 1)
Quarter: 2013Q1

REPORT INFORMATION
  Report Type: Spontaneous
  Country: US (occurrence: None)
  Receive Date: 20130305
  Receipt Date: 20130305
  Transmission Date: 20140127
  Serious: Yes (Hospitalization)
  Sender: FDA-Public Use
  Company Number: 163-21880-12011525

PATIENT
  Age: 70 Year
  Sex: Male

DRUGS (30)
  1. REVLIMID [Suspect]
     Indication: PLASMA CELL MYELOMA
     Dosage: 10 MG, X 21 DAYS, PO
     Dates: start: 20080428
  2. NITROSTAT(GLYCERYL TRINITRATE)(TABLETS) [Concomitant]
  3. NITROSTAT(GLYCERYL TRINITRATE)(TABLETS) [Concomitant]
  4. LACTINEX(LACTINEX)(CHEWABLE TABLET) [Concomitant]
  5. VALACICLOVIR(VALACICLOVIR)(TABLETS) [Concomitant]
  6. B-COMPLEX(B-KOMPLEX ^LECIVA^)(TABLETS) [Concomitant]
  7. DOXYCYCLINE HYCLATE(DOXYCYCLINE HYCLATE)(UNKNOWN) [Concomitant]
  8. SINGULAIR(MONTELUKAST SODIUM)(TABLETS) [Concomitant]
  9. ACYCLOVIR(ACICLOVIR)(TABLETS) [Concomitant]
  10. NOVOLOG FLEXPEN(INSULIN ASPART)(INJECTION) [Concomitant]
  11. COREG(CARVEDILOL)(CAPSULES) [Concomitant]
  12. DEXAMETHASONE(DEXAMETHASONE)(TABLETS) [Concomitant]
  13. ALLOPURINOL(ALLOPURINOL)(TABLETS) [Concomitant]
  14. NOVOLIN R(INSULIN HUMAN)(INJECTION) [Concomitant]
  15. AZITHROMYCIN(AZITHROMYCIN)(TABLETS) [Concomitant]
  16. ASPIRIN(ACETYLSALICYLIC ACID)(UNKNOWN) [Concomitant]
  17. ANGIOMAX(BIVALIRUDIN)(UNKNOWN) [Concomitant]
  18. CALCIUM CARBONATE(CALCIUM CARBONATE)(UNKNOWN) [Concomitant]
  19. PLAVIX(CLOPIDOGREL SULFATE)(UNKNOWN) [Concomitant]
  20. ZETIA(EZETIMIBE)(UNKNOWN) [Concomitant]
  21. DURAGESIC(FENTANYL)(UNKNOWN) [Concomitant]
  22. FENTANYL(FENTANYL)(UNKNOWN) [Concomitant]
  23. NASALIDE(FLUNISOLIDE)(UNKNOWN) [Concomitant]
  24. LASIX(FUROSEMIDE)(UNKNOWN) [Concomitant]
  25. INSULIN(INSULIN)(UNKNOWN) [Concomitant]
  26. IRON(IRON)(UNKNOWN) [Concomitant]
  27. LEVOTHYROXINE(LEVOTHYROXINE)(UNKNOWN) [Concomitant]
  28. PANTOPRAZOLE(PANTOPRAZOLE)(UNKNOWN) [Concomitant]
  29. SIMVASTATIN(SIMVASTATIN)(UNKNOWN) [Concomitant]
  30. BACTRIM DS(BACTRIM)(UNKNOWN) [Concomitant]

REACTIONS (2)
  - Myocardial infarction [None]
  - Thrombosis in device [None]
